FAERS Safety Report 7540363-1 (Version None)
Quarter: 2011Q2

REPORT INFORMATION
  Report Type: 
  Country: None (occurrence: None)
  Receive Date: 20110603
  Receipt Date: 20110518
  Transmission Date: 20111010
  Serious: Yes (Hospitalization, Other)
  Sender: FDA-Public Use
  Company Number: 2011MA006063

PATIENT
  Age: 9 Year
  Sex: Male

DRUGS (2)
  1. SULFATRIM PEDIATRIC [Suspect]
     Indication: SKIN INFECTION
  2. ACETAMINOPHEN [Concomitant]

REACTIONS (9)
  - VIRAL INFECTION [None]
  - PYREXIA [None]
  - ABDOMINAL PAIN [None]
  - HEPATOTOXICITY [None]
  - DECREASED APPETITE [None]
  - ASTHENIA [None]
  - NECK PAIN [None]
  - HEADACHE [None]
  - VOMITING [None]
